FAERS Safety Report 19488732 (Version 3)
Quarter: 2021Q3

REPORT INFORMATION
  Report Type: Spontaneous
  Country: DE (occurrence: DE)
  Receive Date: 20210702
  Receipt Date: 20210810
  Transmission Date: 20211014
  Serious: Yes (Hospitalization, Other)
  Sender: FDA-Public Use
  Company Number: DE-NEUROCRINE BIOSCIENCES INC.-2021NBI03514

PATIENT

DRUGS (1)
  1. ONGENTYS [Suspect]
     Active Substance: OPICAPONE
     Indication: PARKINSON^S DISEASE
     Dosage: UNKNOWN
     Route: 065

REACTIONS (1)
  - Subileus [Unknown]

NARRATIVE: CASE EVENT DATE: 2019
